FAERS Safety Report 6943234-4 (Version None)
Quarter: 2010Q3

REPORT INFORMATION
  Report Type: 
  Country: None (occurrence: None)
  Receive Date: 20100825
  Receipt Date: 20100825
  Transmission Date: 20110219
  Serious: Yes (Hospitalization)
  Sender: FDA-Public Use
  Company Number: None

PATIENT
  Age: 70 Year
  Sex: Male
  Weight: 84 kg

DRUGS (2)
  1. METRONIDAZOLE [Suspect]
     Dosage: 500 MG TID
     Dates: start: 20100605, end: 20100608
  2. WARFARIN SODIUM [Suspect]
     Dosage: EVERY DAY
     Dates: start: 20070406

REACTIONS (4)
  - CLOSTRIDIAL INFECTION [None]
  - HAEMATURIA [None]
  - HAEMORRHAGE [None]
  - INTERNATIONAL NORMALISED RATIO INCREASED [None]
